FAERS Safety Report 4725619-X (Version None)
Quarter: 2005Q3

REPORT INFORMATION
  Report Type: 
  Country: None (occurrence: None)
  Receive Date: 20050727
  Receipt Date: 20050720
  Transmission Date: 20060218
  Serious: Yes (Other)
  Sender: FDA-Public Use
  Company Number: US-MERCK-0507USA03202

PATIENT
  Age: 74 Year
  Sex: Male
  Weight: 73 kg

DRUGS (3)
  1. INDOCIN [Suspect]
     Indication: PAIN
     Route: 048
     Dates: start: 20040412, end: 20050520
  2. PROCRIT [Suspect]
     Indication: ANAEMIA OF MALIGNANT DISEASE
     Route: 058
     Dates: start: 20050318, end: 20050527
  3. PROCRIT [Suspect]
     Indication: MYELODYSPLASTIC SYNDROME
     Route: 058
     Dates: start: 20050318, end: 20050527

REACTIONS (5)
  - APLASIA PURE RED CELL [None]
  - DRUG INEFFECTIVE [None]
  - HERNIA [None]
  - MYELODYSPLASTIC SYNDROME [None]
  - ROAD TRAFFIC ACCIDENT [None]
